FAERS Safety Report 9264779 (Version 1)
Quarter: 2013Q2

REPORT INFORMATION
  Report Type: Spontaneous
  Country: US (occurrence: None)
  Receive Date: 20130429
  Receipt Date: 20130429
  Transmission Date: 20140414
  Serious: No
  Sender: FDA-Public Use
  Company Number: None

PATIENT
  Age: 80 Year
  Sex: Male

DRUGS (6)
  1. REVLIMID [Suspect]
     Indication: PLASMA CELL MYELOMA
     Dosage: REVLIMID 15MG DAILY X21D/28D ORALLY
     Route: 048
     Dates: start: 201303
  2. ATORAVASTATIN [Concomitant]
     Indication: PLASMA CELL MYELOMA
  3. OMEPRAZOLE [Concomitant]
  4. ASA [Concomitant]
  5. RANITIDINE [Concomitant]
  6. TERAZOSIN [Concomitant]

REACTIONS (1)
  - Rash [None]
